FAERS Safety Report 19118336 (Version 1)
Quarter: 2021Q2

REPORT INFORMATION
  Report Type: Spontaneous
  Country: US (occurrence: US)
  Receive Date: 20210409
  Receipt Date: 20210409
  Transmission Date: 20210717
  Serious: No
  Sender: FDA-Public Use
  Company Number: US-BEH-2021130000

PATIENT
  Sex: Female

DRUGS (2)
  1. ZOMETA [Concomitant]
     Active Substance: ZOLEDRONIC ACID
  2. PRIVIGEN [Suspect]
     Active Substance: HUMAN IMMUNOGLOBULIN G
     Indication: APLASIA PURE RED CELL
     Dosage: 20 GRAM, 5 DAYS EVERY 4 WEEKS
     Route: 042
     Dates: start: 20161130

REACTIONS (4)
  - Constipation [Unknown]
  - No adverse event [Unknown]
  - Off label use [Unknown]
  - Paraesthesia [Unknown]
